FAERS Safety Report 9359766 (Version 1)
Quarter: 2013Q2

REPORT INFORMATION
  Report Type: Spontaneous
  Country: GR (occurrence: GR)
  Receive Date: 20130621
  Receipt Date: 20130621
  Transmission Date: 20140414
  Serious: Yes (Other)
  Sender: FDA-Public Use
  Company Number: GR-ROCHE-1236051

PATIENT
  Age: 51 Year
  Sex: Male

DRUGS (3)
  1. CELLCEPT [Suspect]
     Indication: HISTIOCYTOSIS
     Route: 065
     Dates: end: 20130610
  2. CELLCEPT [Suspect]
     Indication: OFF LABEL USE
  3. CORTISONE [Concomitant]
     Route: 065

REACTIONS (7)
  - Sensory loss [Recovering/Resolving]
  - Swelling face [Recovering/Resolving]
  - Dysphagia [Recovering/Resolving]
  - Movement disorder [Recovering/Resolving]
  - Joint stiffness [Recovering/Resolving]
  - Hyperaesthesia [Recovering/Resolving]
  - Hyperaesthesia [Recovering/Resolving]
